FAERS Safety Report 17195004 (Version 1)
Quarter: 2019Q4

REPORT INFORMATION
  Report Type: Spontaneous
  Country: DE (occurrence: DE)
  Receive Date: 20191224
  Receipt Date: 20191224
  Transmission Date: 20200122
  Serious: Yes (Hospitalization)
  Sender: FDA-Public Use
  Company Number: DE-TEVA-2019-DE-1155639

PATIENT
  Age: 49 Year
  Sex: Male
  Weight: 80 kg

DRUGS (19)
  1. TEPILTA BEUTEL [Concomitant]
     Dosage: 582 | 196 | 20 MG, IF NECESSARY, SUSPENSION
     Route: 048
  2. CYTARABIN [Suspect]
     Active Substance: CYTARABINE
     Dosage: 4000 MG / M2, ACCORDING TO THE SCHEME, MOST RECENTLY ON JANUARY 14, 2018,
     Route: 042
  3. COLECALCIFEROL [Concomitant]
     Active Substance: CHOLECALCIFEROL
     Dosage: 1 DF 40000 IE, 1-0-0-0,
     Route: 048
  4. METHOTREXAT [Suspect]
     Active Substance: METHOTREXATE
     Dosage: 1000 MG / M2, ACCORDING TO THE SCHEME, MOST RECENTLY ON JANUARY 10, 2018,
     Route: 042
  5. EPLERENON [Concomitant]
     Active Substance: EPLERENONE
     Dosage: 25 MG, 1-0-0-0
     Route: 048
  6. LEVOTHYROXINE SODIUM. [Concomitant]
     Active Substance: LEVOTHYROXINE SODIUM
     Dosage: 125 MCG, 1-0-0-0,
     Route: 048
  7. KALIUM [Concomitant]
     Active Substance: POTASSIUM CHLORIDE
     Dosage: 8 MVAL, IF NECESSARY,
     Route: 048
  8. PANTOPRAZOL [Concomitant]
     Active Substance: PANTOPRAZOLE SODIUM
     Dosage: 40 MG, 1-0-0-0
     Route: 048
  9. METOPROLOL. [Concomitant]
     Active Substance: METOPROLOL
     Dosage: 47.5 MG, 1-0-1-0
     Route: 048
  10. CLOPIDOGREL [Concomitant]
     Active Substance: CLOPIDOGREL BISULFATE
     Dosage: 75 MG, 1-0-0-0
     Route: 048
  11. ONDANSETRON [Concomitant]
     Active Substance: ONDANSETRON
     Dosage: 8 MG, IF NECESSARY
     Route: 048
  12. ETOPOSID [Suspect]
     Active Substance: ETOPOSIDE
     Dosage: 250 MG / M2, ACCORDING TO THE SCHEME, MOST RECENTLY ON JANUARY 14, 2018
     Route: 042
  13. ACETYLSALICYLSAEURE [Concomitant]
     Active Substance: ASPIRIN
     Dosage: 100 MG, 1-0-0-0,
     Route: 048
  14. ALLOPURINOL. [Concomitant]
     Active Substance: ALLOPURINOL
     Dosage: 150 MG, 1-0-0-0,
     Route: 048
  15. MOVICOL BEUTEL [Concomitant]
     Active Substance: POLYETHYLENE GLYCOL 3350\POTASSIUM CHLORIDE\SODIUM BICARBONATE\SODIUM CHLORIDE
     Dosage: 13.125 | 0.3507 | 0.1785 | 0.0466 G, IF REQUIRED
     Route: 048
  16. RITUXIMAB. [Suspect]
     Active Substance: RITUXIMAB
     Dosage: 375 MG / M2, ACCORDING TO THE SCHEME, MOST RECENTLY ON JANUARY 9, 2018
     Route: 042
  17. ACICLOVIR [Concomitant]
     Active Substance: ACYCLOVIR
     Dosage: 400 MG, 1-0-1-0,
     Route: 048
  18. TORASEMID [Concomitant]
     Active Substance: TORSEMIDE
     Dosage: 10 MG, 1-0-0-0
     Route: 048
  19. SULFAMETHOXAZOL/TRIMETHOPRIM [Concomitant]
     Active Substance: SULFAMETHOXAZOLE\TRIMETHOPRIM
     Dosage: 160|800 MG, 1-0-0-0
     Route: 048

REACTIONS (4)
  - Pyrexia [Unknown]
  - Epistaxis [Unknown]
  - Mucosal inflammation [Unknown]
  - General physical health deterioration [Unknown]
